FAERS Safety Report 13791581 (Version 3)
Quarter: 2017Q3

REPORT INFORMATION
  Report Type: Spontaneous
  Country: US (occurrence: US)
  Receive Date: 20170725
  Receipt Date: 20170818
  Transmission Date: 20171127
  Serious: No
  Sender: FDA-Public Use
  Company Number: US-B.I. PHARMACEUTICALS,INC./RIDGEFIELD-2017-BI-040700

PATIENT
  Sex: Female

DRUGS (1)
  1. SPIRIVA [Suspect]
     Active Substance: TIOTROPIUM BROMIDE MONOHYDRATE
     Indication: PRODUCT USED FOR UNKNOWN INDICATION
     Dosage: STRENGTH: 18 MCG; FORMULATION: CAPSULE; ADMINISTRATION CORRECT? YES; ACTION TAKEN: DOSE NOT CHANGED
     Route: 055
     Dates: start: 2013

REACTIONS (3)
  - Product physical issue [Unknown]
  - Product quality issue [Unknown]
  - Visual impairment [Not Recovered/Not Resolved]
